FAERS Safety Report 25199221 (Version 2)
Quarter: 2025Q3

REPORT INFORMATION
  Report Type: Spontaneous
  Country: JP (occurrence: JP)
  Receive Date: 20250415
  Receipt Date: 20250701
  Transmission Date: 20251021
  Serious: Yes (Death, Hospitalization)
  Sender: DAIICHI
  Company Number: JP-DSJP-DS-2024-114356-JP

PATIENT
  Age: 66 Year
  Sex: Female

DRUGS (1)
  1. ENHERTU [Suspect]
     Active Substance: FAM-TRASTUZUMAB DERUXTECAN-NXKI
     Indication: HER2 positive breast cancer
     Dosage: 5.4 MG/KG, ONCE EVERY 3 WK
     Route: 041
     Dates: start: 202409, end: 202411

REACTIONS (5)
  - Interstitial lung disease [Recovering/Resolving]
  - Disease progression [Fatal]
  - Nausea [Unknown]
  - Infection [Not Recovered/Not Resolved]
  - Pleural effusion [Not Recovered/Not Resolved]

NARRATIVE: CASE EVENT DATE: 20240101
